FAERS Safety Report 8304124-8 (Version None)
Quarter: 2012Q2

REPORT INFORMATION
  Report Type: 
  Country: None (occurrence: None)
  Receive Date: 20120423
  Receipt Date: 20120418
  Transmission Date: 20120825
  Serious: No
  Sender: FDA-Public Use
  Company Number: US-PFIZER INC-2012097409

PATIENT
  Sex: Male
  Weight: 82 kg

DRUGS (4)
  1. NICOTROL [Suspect]
     Indication: SMOKING CESSATION THERAPY
     Dosage: 10 MG, 5-6 TIMES A DAY
     Route: 055
     Dates: start: 20120305
  2. SIMVASTATIN [Concomitant]
     Indication: BLOOD CHOLESTEROL INCREASED
     Dosage: 20 MG, DAILY
  3. LISINOPRIL [Concomitant]
     Indication: HYPERTENSION
     Dosage: 12.5 MG, DAILY
  4. NEXIUM [Concomitant]
     Indication: GASTROOESOPHAGEAL REFLUX DISEASE
     Dosage: 40 MG, DAILY

REACTIONS (1)
  - CONSTIPATION [None]
